FAERS Safety Report 9506763 (Version 1)
Quarter: 2013Q3

REPORT INFORMATION
  Report Type: Spontaneous
  Country: US (occurrence: None)
  Receive Date: 20130905
  Receipt Date: 20130905
  Transmission Date: 20140515
  Serious: Yes (Other)
  Sender: FDA-Public Use
  Company Number: None

PATIENT
  Age: 12 Year
  Sex: Male

DRUGS (1)
  1. GRISEOFULVIN [Suspect]
     Indication: TINEA CAPITIS
     Route: 048
     Dates: start: 20130728, end: 20130731

REACTIONS (2)
  - Skin exfoliation [None]
  - Burning sensation [None]
